FAERS Safety Report 12509280 (Version 1)
Quarter: 2016Q2

REPORT INFORMATION
  Report Type: Report from Study
  Country: IN (occurrence: IN)
  Receive Date: 20160629
  Receipt Date: 20160629
  Transmission Date: 20160815
  Serious: Yes (Hospitalization)
  Sender: FDA-Public Use
  Company Number: IN-009507513-1606IND013002

PATIENT
  Sex: Male

DRUGS (1)
  1. SITAGLIPTIN PHOSPHATE (+) METFORMIN HYDROCHLORIDE [Suspect]
     Active Substance: METFORMIN HYDROCHLORIDE\SITAGLIPTIN PHOSPHATE
     Indication: DIABETES MELLITUS
     Dosage: 50/500 (UNITS NOR PROVIDED), QD
     Route: 048

REACTIONS (3)
  - Gastrointestinal disorder [Unknown]
  - Hypertension [Unknown]
  - Inappropriate schedule of drug administration [Unknown]
